FAERS Safety Report 5027975-4 (Version None)
Quarter: 2006Q2

REPORT INFORMATION
  Report Type: 
  Country: None (occurrence: None)
  Receive Date: 20060609
  Receipt Date: 20060531
  Transmission Date: 20061013
  Serious: Yes (Hospitalization)
  Sender: FDA-Public Use
  Company Number: 200613293BWH

PATIENT
  Sex: Male

DRUGS (1)
  1. SORAFENIB [Suspect]
     Indication: INTRAVASCULAR PAPILLARY ENDOTHELIAL HYPERPLASIA
     Dosage: 400 MG, BID, ORAL
     Route: 048
     Dates: start: 20051222, end: 20060515

REACTIONS (6)
  - ACUTE ABDOMEN [None]
  - DIVERTICULITIS [None]
  - LIVER DISORDER [None]
  - LUNG DISORDER [None]
  - PERITONEAL FLUID ANALYSIS ABNORMAL [None]
  - SMALL INTESTINAL PERFORATION [None]
